FAERS Safety Report 5312271-8 (Version None)
Quarter: 2007Q2

REPORT INFORMATION
  Report Type: 
  Country: None (occurrence: None)
  Receive Date: 20070430
  Receipt Date: 20061006
  Transmission Date: 20071010
  Serious: No
  Sender: FDA-Public Use
  Company Number: 2006UW19510

PATIENT
  Age: 60 Year
  Sex: Male
  Weight: 83 kg

DRUGS (1)
  1. NEXIUM [Suspect]
     Indication: OESOPHAGITIS
     Route: 048
     Dates: start: 20030101

REACTIONS (2)
  - DYSSTASIA [None]
  - MYALGIA [None]
